FAERS Safety Report 17974301 (Version 1)
Quarter: 2020Q3

REPORT INFORMATION
  Report Type: Spontaneous
  Country: US (occurrence: US)
  Receive Date: 20200702
  Receipt Date: 20200702
  Transmission Date: 20201103
  Serious: Yes (Other)
  Sender: FDA-Public Use
  Company Number: US-PFIZER INC-2020253241

PATIENT
  Age: 71 Year
  Sex: Female
  Weight: 54.43 kg

DRUGS (2)
  1. IBRANCE [Suspect]
     Active Substance: PALBOCICLIB
     Indication: BREAST CANCER METASTATIC
     Dosage: 75 MG, 1X/DAY
     Route: 048
     Dates: start: 202005
  2. IBRANCE [Suspect]
     Active Substance: PALBOCICLIB
     Indication: BREAST CANCER METASTATIC
     Dosage: 125 MG, 1X/DAY
     Route: 048
     Dates: end: 202004

REACTIONS (9)
  - Myalgia [Unknown]
  - Arthritis [Unknown]
  - Memory impairment [Unknown]
  - Condition aggravated [Unknown]
  - Nausea [Unknown]
  - Bone pain [Unknown]
  - Pain in extremity [Unknown]
  - Visual impairment [Unknown]
  - Neuropathy peripheral [Unknown]
